FAERS Safety Report 19196327 (Version 2)
Quarter: 2021Q2

REPORT INFORMATION
  Report Type: Spontaneous
  Country: TR (occurrence: TR)
  Receive Date: 20210429
  Receipt Date: 20210505
  Transmission Date: 20210717
  Serious: No
  Sender: FDA-Public Use
  Company Number: TR-NOVOPROD-806513

PATIENT
  Age: 26 Year
  Sex: Female
  Weight: 117 kg

DRUGS (6)
  1. LUTINUS [Concomitant]
     Active Substance: PROGESTERONE
     Dosage: TWICE A DAY
     Route: 067
  2. ALFAMET [Suspect]
     Active Substance: METHYLDOPA
     Indication: PRODUCT USED FOR UNKNOWN INDICATION
     Dosage: ONCE A DAY AFTER BREAKFAST
     Route: 048
  3. WINCEF [CEFTRIAXONE SODIUM] [Concomitant]
     Dosage: ONCE A DAY
     Route: 067
  4. NOVORAPID [Suspect]
     Active Substance: INSULIN ASPART
     Indication: GESTATIONAL DIABETES
     Dosage: 4 IU, TID
     Route: 058
  5. BIOKADIN [Suspect]
     Active Substance: POVIDONE-IODINE
     Indication: PRODUCT USED FOR UNKNOWN INDICATION
     Dosage: ONCE A DAY
     Route: 065
  6. LEVEMIR [Suspect]
     Active Substance: INSULIN DETEMIR
     Indication: GESTATIONAL DIABETES
     Dosage: 6 IU, QD
     Route: 058

REACTIONS (1)
  - Maternal exposure during pregnancy [Recovered/Resolved]
